FAERS Safety Report 20264948 (Version 1)
Quarter: 2021Q4

REPORT INFORMATION
  Report Type: Spontaneous
  Country: US (occurrence: None)
  Receive Date: 20211230
  Receipt Date: 20211230
  Transmission Date: 20220303
  Serious: No
  Sender: FDA-Public Use
  Company Number: None

PATIENT
  Age: 63 Year
  Sex: Male

DRUGS (1)
  1. ABIRATERONE ACETATE [Suspect]
     Active Substance: ABIRATERONE ACETATE
     Indication: Prostate cancer
     Dosage: FREQUENCY : DAILY;?
     Route: 048
     Dates: start: 201711

REACTIONS (8)
  - Pain in extremity [None]
  - Pruritus [None]
  - Skin burning sensation [None]
  - Pain [None]
  - Affect lability [None]
  - Depressed mood [None]
  - Agitation [None]
  - COVID-19 [None]

NARRATIVE: CASE EVENT DATE: 20211101
